FAERS Safety Report 4482075-7 (Version None)
Quarter: 2004Q3

REPORT INFORMATION
  Report Type: 
  Country: None (occurrence: None)
  Receive Date: 20040921
  Receipt Date: 20030814
  Transmission Date: 20050211
  Serious: Yes (Other)
  Sender: FDA-Public Use
  Company Number: 163-20785-03070090(1)

PATIENT
  Age: 64 Year
  Sex: Female

DRUGS (2)
  1. THALOMID [Suspect]
     Indication: MOUTH ULCERATION
     Dosage: 50 MG, BID, ORAL
     Route: 048
     Dates: start: 20030116
  2. LORTAB [Concomitant]

REACTIONS (3)
  - ANAEMIA [None]
  - NEUROPATHY [None]
  - PARAESTHESIA [None]
